FAERS Safety Report 4477675-4 (Version None)
Quarter: 2004Q3

REPORT INFORMATION
  Report Type: 
  Country: None (occurrence: None)
  Receive Date: 20040923
  Receipt Date: 20040719
  Transmission Date: 20050211
  Serious: No
  Sender: FDA-Public Use
  Company Number: USA040773086

PATIENT
  Age: 77 Year
  Sex: Female

DRUGS (5)
  1. FORTEO [Suspect]
     Indication: OSTEOPOROSIS
     Dates: start: 20040626
  2. ALBUTEROL [Concomitant]
  3. SINGULAIR (MONTELUKAST) [Concomitant]
  4. MULTI-VITAMINS [Concomitant]
  5. ASPIRIN [Concomitant]

REACTIONS (1)
  - OEDEMA PERIPHERAL [None]
